FAERS Safety Report 5531213-3 (Version None)
Quarter: 2007Q4

REPORT INFORMATION
  Report Type: 
  Country: None (occurrence: None)
  Receive Date: 20071130
  Receipt Date: 20071122
  Transmission Date: 20080405
  Serious: Yes (Death, Hospitalization)
  Sender: FDA-Public Use
  Company Number: MX-MERCK-0711MEX00017

PATIENT
  Age: 70 Year
  Sex: Male

DRUGS (4)
  1. JANUMET [Suspect]
     Indication: TYPE 2 DIABETES MELLITUS
     Route: 048
     Dates: start: 20071017, end: 20071019
  2. DICLOFENAC [Concomitant]
     Indication: OSTEOARTHRITIS
     Route: 065
  3. ASPIRIN [Concomitant]
     Route: 065
  4. VITAMIN B COMPLEX [Concomitant]
     Indication: MEDICAL DIET
     Route: 065

REACTIONS (11)
  - ACUTE PULMONARY OEDEMA [None]
  - AMAUROSIS [None]
  - BACTERIURIA [None]
  - CEREBRAL INFARCTION [None]
  - CHRONIC OBSTRUCTIVE PULMONARY DISEASE [None]
  - HEADACHE [None]
  - HYPERGLYCAEMIA [None]
  - HYPERTENSION [None]
  - INAPPROPRIATE SCHEDULE OF DRUG ADMINISTRATION [None]
  - LEUKOCYTURIA [None]
  - MYOCARDIAL INFARCTION [None]
